FAERS Safety Report 19180610 (Version 10)
Quarter: 2023Q1

REPORT INFORMATION
  Report Type: Report from Study
  Country: CN (occurrence: None)
  Receive Date: 20210426
  Receipt Date: 20230116
  Transmission Date: 20230417
  Serious: Yes (Life-Threatening, Hospitalization)
  Sender: FDA-Public Use
  Company Number: CN-ROCHE-2791756

PATIENT
  Age: 69 Year
  Sex: Male
  Weight: 58 kg

DRUGS (31)
  1. ATEZOLIZUMAB [Suspect]
     Active Substance: ATEZOLIZUMAB
     Indication: Non-small cell lung cancer
     Dosage: START DATE OF MOST RECENT DOSE OF BLINDED STUDY DRUG PRIOR TO AE/SAE ONSET 23/FEB/2021
     Route: 041
     Dates: start: 20200730
  2. BEVACIZUMAB [Suspect]
     Active Substance: BEVACIZUMAB
     Indication: Non-small cell lung cancer
     Dosage: START DATE OF MOST RECENT DOSE OF BEVACIZUMAB, 920 MG PRIOR TO AE/SAE 23/FEB/2021?BEVACIZUMAB WILL B
     Route: 042
     Dates: start: 20200730
  3. CARBOPLATIN [Suspect]
     Active Substance: CARBOPLATIN
     Indication: Non-small cell lung cancer
     Dosage: START DATE OF MOST RECENT DOSE OF CARBOPLATIN, 200 MG PRIOR TO AE/SAE ONSET 14/OCT/2020?INITIAL TARG
     Route: 042
     Dates: start: 20200730
  4. PEMETREXED [Suspect]
     Active Substance: PEMETREXED
     Indication: Non-small cell lung cancer
     Dosage: START DATE OF MOST RECENT DOSE OF PEMETREXED, 600 MG PRIOR TO AE/SAE ONSET: 23/FEB/2021
     Route: 042
     Dates: start: 20200730
  5. ACETAMINOPHEN\DIHYDROCODEINE BITARTRATE [Concomitant]
     Active Substance: ACETAMINOPHEN\DIHYDROCODEINE BITARTRATE
     Indication: Cough
     Dates: start: 20200730
  6. DEXAMETHASONE SODIUM PHOSPHATE [Concomitant]
     Active Substance: DEXAMETHASONE SODIUM PHOSPHATE
     Route: 042
     Dates: start: 20210223, end: 20210223
  7. OPRELVEKIN [Concomitant]
     Active Substance: OPRELVEKIN
     Dates: start: 20210226, end: 20210307
  8. OPRELVEKIN [Concomitant]
     Active Substance: OPRELVEKIN
     Dates: start: 20210311, end: 20210313
  9. GRANULOCYTE COLONY-STIMULATING FACTOR NOS [Concomitant]
     Active Substance: GRANULOCYTE COLONY-STIMULATING FACTOR NOS
     Dates: start: 20210311, end: 20210311
  10. ENOXAPARIN SODIUM [Concomitant]
     Active Substance: ENOXAPARIN SODIUM
     Dates: start: 20210316, end: 20210317
  11. FUROSEMIDE [Concomitant]
     Active Substance: FUROSEMIDE
     Indication: Polyuria
     Dates: start: 20210315, end: 20210322
  12. FUROSEMIDE [Concomitant]
     Active Substance: FUROSEMIDE
     Dates: start: 20210322, end: 20210404
  13. ASPIRIN [Concomitant]
     Active Substance: ASPIRIN
     Dates: start: 20210316, end: 20210320
  14. CLOPIDOGREL BISULFATE [Concomitant]
     Active Substance: CLOPIDOGREL BISULFATE
     Dates: start: 20210316, end: 20210318
  15. RIVAROXABAN [Concomitant]
     Active Substance: RIVAROXABAN
     Dates: start: 20210319, end: 20210320
  16. SODIUM BICARBONATE [Concomitant]
     Active Substance: SODIUM BICARBONATE
     Dates: start: 20210315, end: 20210315
  17. MONTMORILLONITE [Concomitant]
     Active Substance: MONTMORILLONITE
     Indication: Diarrhoea
     Dates: start: 20210311, end: 20210311
  18. AMIODARONE HYDROCHLORIDE [Concomitant]
     Active Substance: AMIODARONE HYDROCHLORIDE
     Dates: start: 20210316, end: 20210316
  19. IVABRADINE HYDROCHLORIDE [Concomitant]
     Active Substance: IVABRADINE HYDROCHLORIDE
     Dates: start: 20210316, end: 20210316
  20. IVABRADINE HYDROCHLORIDE [Concomitant]
     Active Substance: IVABRADINE HYDROCHLORIDE
     Dates: start: 20210316, end: 20210316
  21. FOLIC ACID [Concomitant]
     Active Substance: FOLIC ACID
     Dates: start: 20210223, end: 20210301
  22. RECOMBINANT HUMAN THROMBOPOIETIN (UNK INGREDIENTS) [Concomitant]
     Dates: start: 20210319, end: 20210322
  23. PALONOSETRON HYDROCHLORIDE [Concomitant]
     Active Substance: PALONOSETRON HYDROCHLORIDE
     Dates: start: 20210223, end: 20210223
  24. DEXAMETHASONE SODIUM PHOSPHATE [Concomitant]
     Active Substance: DEXAMETHASONE SODIUM PHOSPHATE
     Route: 042
     Dates: start: 20210223, end: 20210223
  25. OMEPRAZOLE SODIUM [Concomitant]
     Active Substance: OMEPRAZOLE SODIUM
     Dates: start: 20210223, end: 20210223
  26. PHOSPHOLIPID [Concomitant]
     Active Substance: PHOSPHOLIPID
     Dates: start: 20210223, end: 20210223
  27. ENOXAPARIN SODIUM [Concomitant]
     Active Substance: ENOXAPARIN SODIUM
     Route: 042
     Dates: start: 20210316, end: 20210317
  28. OMEPRAZOLE SODIUM [Concomitant]
     Active Substance: OMEPRAZOLE SODIUM
  29. DESLANOSIDE [Concomitant]
     Active Substance: DESLANOSIDE
     Dates: start: 20210315, end: 20210315
  30. TRIMETAZIDINE DIHYDROCHLORIDE [Concomitant]
     Active Substance: TRIMETAZIDINE DIHYDROCHLORIDE
     Dates: start: 20210322, end: 20210404
  31. UBIDECARENONE [Concomitant]
     Active Substance: UBIDECARENONE
     Dates: start: 20210322, end: 20210404

REACTIONS (1)
  - Cardiac failure acute [Not Recovered/Not Resolved]

NARRATIVE: CASE EVENT DATE: 20210315
